FAERS Safety Report 18012985 (Version 1)
Quarter: 2020Q3

REPORT INFORMATION
  Report Type: Spontaneous
  Country: US (occurrence: US)
  Receive Date: 20200713
  Receipt Date: 20200713
  Transmission Date: 20201105
  Serious: Yes (Other)
  Sender: FDA-Public Use
  Company Number: US-HIKMA PHARMACEUTICALS USA INC.-US-H14001-20-03192

PATIENT
  Age: 70 Year
  Sex: Female

DRUGS (25)
  1. ISOSORBIDE DINITRATE. [Suspect]
     Active Substance: ISOSORBIDE DINITRATE
     Indication: PRODUCT USED FOR UNKNOWN INDICATION
     Route: 048
  2. RISPERIDONE. [Suspect]
     Active Substance: RISPERIDONE
     Route: 065
  3. OLANZAPINE. [Suspect]
     Active Substance: OLANZAPINE
     Indication: SCHIZOAFFECTIVE DISORDER
     Route: 065
  4. CARVEDILOL. [Suspect]
     Active Substance: CARVEDILOL
     Indication: PRODUCT USED FOR UNKNOWN INDICATION
     Route: 048
  5. FERROUS SULFATE. [Suspect]
     Active Substance: FERROUS SULFATE
     Indication: PRODUCT USED FOR UNKNOWN INDICATION
     Route: 048
  6. CLONIDINE. [Suspect]
     Active Substance: CLONIDINE
     Indication: PRODUCT USED FOR UNKNOWN INDICATION
     Route: 062
  7. CLOZAPINE. [Suspect]
     Active Substance: CLOZAPINE
     Route: 065
  8. DOCUSATE [Suspect]
     Active Substance: DOCUSATE
     Indication: PRODUCT USED FOR UNKNOWN INDICATION
     Route: 048
  9. MULTIVITAMIN [Suspect]
     Active Substance: VITAMINS
     Indication: PRODUCT USED FOR UNKNOWN INDICATION
     Route: 048
  10. AMLODIPINE [Suspect]
     Active Substance: AMLODIPINE BESYLATE
     Indication: PRODUCT USED FOR UNKNOWN INDICATION
     Route: 048
  11. RISPERIDONE. [Suspect]
     Active Substance: RISPERIDONE
     Indication: SCHIZOAFFECTIVE DISORDER
     Route: 065
  12. ATORVASTATIN [Suspect]
     Active Substance: ATORVASTATIN
     Indication: PRODUCT USED FOR UNKNOWN INDICATION
     Route: 048
  13. LORAZEPAM. [Suspect]
     Active Substance: LORAZEPAM
     Indication: PRODUCT USED FOR UNKNOWN INDICATION
     Route: 048
  14. ZIPRASIDONE. [Suspect]
     Active Substance: ZIPRASIDONE
     Indication: SCHIZOAFFECTIVE DISORDER
     Route: 065
  15. ASPIRIN. [Suspect]
     Active Substance: ASPIRIN
     Indication: PRODUCT USED FOR UNKNOWN INDICATION
     Route: 048
  16. DONEPEZIL. [Suspect]
     Active Substance: DONEPEZIL
     Indication: PRODUCT USED FOR UNKNOWN INDICATION
     Route: 048
  17. BRIMONIDINE [Suspect]
     Active Substance: BRIMONIDINE TARTRATE
     Indication: PRODUCT USED FOR UNKNOWN INDICATION
     Route: 065
  18. TRAZODONE [Suspect]
     Active Substance: TRAZODONE HYDROCHLORIDE
     Indication: PRODUCT USED FOR UNKNOWN INDICATION
     Route: 048
  19. CLOZAPINE. [Suspect]
     Active Substance: CLOZAPINE
     Indication: SCHIZOAFFECTIVE DISORDER
     Route: 065
  20. HYDRALAZINE [Suspect]
     Active Substance: HYDRALAZINE HYDROCHLORIDE
     Indication: PRODUCT USED FOR UNKNOWN INDICATION
     Route: 048
  21. ACETAMINOPHEN. [Suspect]
     Active Substance: ACETAMINOPHEN
     Indication: PRODUCT USED FOR UNKNOWN INDICATION
     Route: 048
  22. OLANZAPINE. [Suspect]
     Active Substance: OLANZAPINE
     Route: 065
  23. DIVALPROEX SODIUM ER [Suspect]
     Active Substance: DIVALPROEX SODIUM
     Indication: PRODUCT USED FOR UNKNOWN INDICATION
     Route: 048
  24. CLOZAPINE. [Suspect]
     Active Substance: CLOZAPINE
     Route: 065
  25. HEPARIN [Suspect]
     Active Substance: HEPARIN SODIUM
     Indication: PRODUCT USED FOR UNKNOWN INDICATION
     Route: 058

REACTIONS (1)
  - Hypothermia [Recovered/Resolved]
